FAERS Safety Report 5483973-8 (Version None)
Quarter: 2007Q4

REPORT INFORMATION
  Report Type: 
  Country: None (occurrence: None)
  Receive Date: 20071012
  Receipt Date: 20071005
  Transmission Date: 20080405
  Serious: Yes (Death)
  Sender: FDA-Public Use
  Company Number: JP-BRACCO-BRO-012164

PATIENT
  Age: 56 Year
  Sex: Male

DRUGS (2)
  1. IOPAMIRON [Suspect]
     Indication: AORTIC DISSECTION
     Route: 042
     Dates: start: 20070928, end: 20070928
  2. IOPAMIRON [Suspect]
     Route: 042
     Dates: start: 20070928, end: 20070928

REACTIONS (2)
  - CARDIAC ARREST [None]
  - VOMITING [None]
